FAERS Safety Report 14578111 (Version 1)
Quarter: 2018Q1

REPORT INFORMATION
  Report Type: Spontaneous
  Country: GB (occurrence: GB)
  Receive Date: 20180227
  Receipt Date: 20180227
  Transmission Date: 20180509
  Serious: Yes (Other)
  Sender: FDA-Public Use
  Company Number: GB-GILEAD-2018-0323187

PATIENT
  Age: 54 Year
  Sex: Male
  Weight: 125 kg

DRUGS (11)
  1. AMLODIPINE [Concomitant]
     Active Substance: AMLODIPINE BESYLATE
  2. PROCORALAN [Concomitant]
     Active Substance: IVABRADINE
  3. GLICLAZIDE [Concomitant]
     Active Substance: GLICLAZIDE
  4. ASPIRIN                            /00002701/ [Concomitant]
     Active Substance: ASPIRIN
  5. LIPITOR [Concomitant]
     Active Substance: ATORVASTATIN CALCIUM
  6. CLOPIDOGREL [Concomitant]
     Active Substance: CLOPIDOGREL BISULFATE
  7. RANOLAZINE. [Suspect]
     Active Substance: RANOLAZINE
     Indication: PRODUCT USED FOR UNKNOWN INDICATION
     Dosage: 750 MG, QD
     Route: 048
     Dates: start: 20180202, end: 20180203
  8. METFORMIN HYDROCHLORIDE. [Concomitant]
     Active Substance: METFORMIN HYDROCHLORIDE
  9. JANUVIA [Concomitant]
     Active Substance: SITAGLIPTIN PHOSPHATE
  10. COVERSYL                           /00790702/ [Concomitant]
     Active Substance: PERINDOPRIL
  11. CARVEDILOL. [Concomitant]
     Active Substance: CARVEDILOL

REACTIONS (3)
  - Off label use [Recovered/Resolved]
  - Ear swelling [Recovered/Resolved with Sequelae]
  - Swelling face [Recovered/Resolved with Sequelae]

NARRATIVE: CASE EVENT DATE: 20180202
